FAERS Safety Report 7208936-3 (Version None)
Quarter: 2011Q1

REPORT INFORMATION
  Report Type: 
  Country: None (occurrence: None)
  Receive Date: 20110104
  Receipt Date: 20101223
  Transmission Date: 20110831
  Serious: Yes (Other)
  Sender: FDA-Public Use
  Company Number: CA-WATSON-2010-16442

PATIENT
  Sex: Female

DRUGS (3)
  1. CIPROFLOXACIN HCL [Suspect]
     Indication: CYSTITIS
     Dosage: UNK
     Route: 048
     Dates: end: 20071201
  2. CIPROFLOXACIN HCL [Suspect]
     Indication: BACTERIAL INFECTION
     Dosage: UNK
     Route: 048
  3. CIPROFLOXACIN HCL [Suspect]
     Dosage: 500 MG, BID
     Route: 048
     Dates: start: 19980101

REACTIONS (8)
  - JOINT INJURY [None]
  - CARTILAGE ATROPHY [None]
  - OSTEOPENIA [None]
  - MUSCLE ATROPHY [None]
  - OSTEOARTHRITIS [None]
  - INSOMNIA [None]
  - FALL [None]
  - MEMORY IMPAIRMENT [None]
